FAERS Safety Report 4824610-2 (Version None)
Quarter: 2005Q4

REPORT INFORMATION
  Report Type: 
  Country: None (occurrence: None)
  Receive Date: 20051108
  Receipt Date: 20051024
  Transmission Date: 20060501
  Serious: Yes (Hospitalization)
  Sender: FDA-Public Use
  Company Number: EWC051046928

PATIENT
  Age: 69 Year
  Sex: Male

DRUGS (4)
  1. HUMULIN N [Suspect]
     Indication: DIABETES MELLITUS
     Dosage: 50 IU/3 DAY
  2. HUMULIN R [Suspect]
     Indication: DIABETES MELLITUS
     Dosage: 26 IU/2 DAY
  3. MINIPRESS [Concomitant]
  4. COVEREX (PERINDOPRIL) [Concomitant]

REACTIONS (2)
  - DIABETIC FOOT [None]
  - INFLAMMATION [None]
